FAERS Safety Report 6439820-0 (Version None)
Quarter: 2009Q4

REPORT INFORMATION
  Report Type: 
  Country: None (occurrence: None)
  Receive Date: 20091113
  Receipt Date: 20091106
  Transmission Date: 20100525
  Serious: Yes (Hospitalization)
  Sender: FDA-Public Use
  Company Number: US-ASTRAZENECA-2009SE21391

PATIENT
  Age: 80 Year
  Sex: Female
  Weight: 50.2 kg

DRUGS (40)
  1. ARIMIDEX [Suspect]
     Indication: BREAST CANCER
     Route: 048
     Dates: start: 20070206
  2. ZOMETA [Suspect]
     Route: 042
     Dates: start: 20070206
  3. ZOMETA [Suspect]
     Route: 042
     Dates: start: 20070306
  4. ZOMETA [Suspect]
     Route: 042
     Dates: start: 20070327
  5. ZOMETA [Suspect]
     Route: 042
     Dates: start: 20070424
  6. ZOMETA [Suspect]
     Route: 042
     Dates: start: 20070529
  7. ZOMETA [Suspect]
     Route: 042
     Dates: start: 20070626
  8. ZOMETA [Suspect]
     Route: 042
     Dates: start: 20070724
  9. ZOMETA [Suspect]
     Route: 042
     Dates: start: 20070821
  10. ZOMETA [Suspect]
     Route: 042
     Dates: start: 20070918
  11. ZOMETA [Suspect]
     Route: 042
     Dates: start: 20071015
  12. ZOMETA [Suspect]
     Route: 042
     Dates: start: 20071113
  13. ZOMETA [Suspect]
     Route: 042
     Dates: start: 20071211
  14. ZOMETA [Suspect]
     Route: 042
     Dates: start: 20080111
  15. ZOMETA [Suspect]
     Route: 042
     Dates: start: 20080204
  16. ZOMETA [Suspect]
     Route: 042
     Dates: start: 20080303
  17. ZOMETA [Suspect]
     Route: 042
     Dates: start: 20080401
  18. ZOMETA [Suspect]
     Route: 042
     Dates: start: 20080502
  19. ZOMETA [Suspect]
     Route: 042
     Dates: start: 20080807
  20. ZOMETA [Suspect]
     Route: 042
     Dates: start: 20080602
  21. ZOMETA [Suspect]
     Route: 042
     Dates: start: 20080811
  22. ZOMETA [Suspect]
     Route: 042
     Dates: start: 20080916
  23. ZOMETA [Suspect]
     Route: 042
     Dates: start: 20081014
  24. ZOMETA [Suspect]
     Route: 042
     Dates: start: 20081125
  25. ZOMETA [Suspect]
     Route: 042
     Dates: start: 20090107
  26. ZOMETA [Suspect]
     Route: 042
     Dates: start: 20090204
  27. ZOMETA [Suspect]
     Route: 042
     Dates: start: 20090303
  28. ZOMETA [Suspect]
     Route: 042
     Dates: start: 20090408
  29. ZOMETA [Suspect]
     Route: 042
     Dates: start: 20090526
  30. ZOMETA [Suspect]
     Route: 042
     Dates: start: 20090622
  31. ZOMETA [Suspect]
     Route: 042
     Dates: start: 20090815
  32. ZOMETA [Suspect]
     Route: 042
     Dates: start: 20090818
  33. ZOMETA [Suspect]
     Route: 042
     Dates: end: 20090916
  34. OXINORM [Concomitant]
     Indication: BACK PAIN
  35. AMLODIPINE BESYLATE [Concomitant]
  36. METHYCOBAL [Concomitant]
  37. MUCOSTA [Concomitant]
  38. LOXOPROFEN SODIUM [Concomitant]
     Route: 065
     Dates: start: 20080916, end: 20091001
  39. GOSHAJINKIGAN [Concomitant]
     Route: 065
     Dates: start: 20081002, end: 20091001
  40. MILTAX [Concomitant]
     Route: 065
     Dates: start: 20080909

REACTIONS (1)
  - RENAL FAILURE ACUTE [None]
